FAERS Safety Report 9222893 (Version 1)
Quarter: 2013Q2

REPORT INFORMATION
  Report Type: Spontaneous
  Country: US (occurrence: US)
  Receive Date: 20130410
  Receipt Date: 20130410
  Transmission Date: 20140414
  Serious: No
  Sender: FDA-Public Use
  Company Number: US-BAYER-2013-045139

PATIENT
  Sex: Female

DRUGS (14)
  1. BETASERON [Suspect]
     Dosage: 0.25 MG, QOD
     Route: 058
  2. DIOVAN [Concomitant]
     Dosage: 160 MG, UNK
  3. CARVEDILOL [Concomitant]
     Dosage: 12.5 MG, UNK
  4. SIMVASTATIN [Concomitant]
     Dosage: 10 MG, UNK
  5. AMPYRA [Concomitant]
     Dosage: 10 MG, UNK
  6. BABY ASPIRIN [Concomitant]
     Dosage: 81 MG, UNK
  7. MULTITABS [Concomitant]
  8. CALCIUM +VIT D [Concomitant]
  9. HYDROCHLOROTHIAZID [Concomitant]
     Dosage: 12.5 MG, UNK
  10. LOSARTAN POTASSIUM [Concomitant]
     Dosage: 25 MG, UNK
  11. VITAMIN D [Concomitant]
     Dosage: 1000 U, UNK
  12. HUMALOG [Concomitant]
     Dosage: 100 /ML, UNK
  13. LISINOPRIL [Concomitant]
     Dosage: 5 MG, UNK
  14. CLONIDINE [Concomitant]
     Dosage: 0.1 UNK, UNK

REACTIONS (3)
  - Injection site mass [Unknown]
  - Injection site scar [Unknown]
  - Injection site reaction [Unknown]
